FAERS Safety Report 8439110 (Version 2)
Quarter: 2013Q2

REPORT INFORMATION
  Report Type: Spontaneous
  Country: US (occurrence: None)
  Receive Date: 20120104
  Receipt Date: 20120508
  Transmission Date: 20140414
  Serious: Yes (Other)
  Sender: FDA-Public Use
  Company Number: 2011HGS-002921

PATIENT
  Age: 31 Year
  Sex: Female

DRUGS (1)
  1. BENLYSTA [Suspect]
     Indication: SYSTEMIC LUPUS ERYTHEMATOSUS
     Dosage: IP
     Route: 041
     Dates: start: 20110713

REACTIONS (5)
  - TONGUE OEDEMA [None]
  - SENSATION OF PRESSURE [None]
  - THROAT IRRITATION [None]
  - PRURITUS [None]
  - Hypersensitivity [None]
